FAERS Safety Report 18793588 (Version 1)
Quarter: 2021Q1

REPORT INFORMATION
  Report Type: Spontaneous
  Country: CA (occurrence: CA)
  Receive Date: 20210127
  Receipt Date: 20210127
  Transmission Date: 20210419
  Serious: No
  Sender: FDA-Public Use
  Company Number: None

PATIENT
  Age: 60 Year
  Sex: Female
  Weight: 67.5 kg

DRUGS (5)
  1. ZINC. [Concomitant]
     Active Substance: ZINC
  2. VIT D [Concomitant]
     Active Substance: VITAMIN D NOS
  3. MULTIVITAMIN [Concomitant]
     Active Substance: VITAMINS
  4. ARNICA CREAM [Suspect]
     Active Substance: ARNICA MONTANA\HERBALS\HOMEOPATHICS
     Indication: PAIN
     Dosage: ?          QUANTITY:1 ML;?
     Route: 061
  5. VITAMIN C [Concomitant]
     Active Substance: ASCORBIC ACID

REACTIONS (2)
  - Application site pain [None]
  - Application site erythema [None]

NARRATIVE: CASE EVENT DATE: 20210126
